FAERS Safety Report 6427199-X (Version None)
Quarter: 2009Q4

REPORT INFORMATION
  Report Type: 
  Country: None (occurrence: None)
  Receive Date: 20091030
  Receipt Date: 20091016
  Transmission Date: 20100525
  Serious: Yes (Death, Hospitalization)
  Sender: FDA-Public Use
  Company Number: 2009AC000270

PATIENT
  Age: 81 Year
  Sex: Male
  Weight: 61.6892 kg

DRUGS (36)
  1. DIGOXIN [Suspect]
     Dosage: .125 MG; PO
     Route: 048
     Dates: start: 20020101
  2. DIGOXIN [Suspect]
     Dosage: .25 MG; PO
     Route: 048
     Dates: start: 20060216
  3. PAROXETINE HCL [Concomitant]
  4. ACCUPRIL [Concomitant]
  5. LIPITOR [Concomitant]
  6. OCUFLOX [Concomitant]
  7. WARFARIN [Concomitant]
  8. SODIUM [Concomitant]
  9. ACULAR [Concomitant]
  10. PREDNISOLONE [Concomitant]
  11. ALBUTEROL [Concomitant]
  12. FUROSEMIDE [Concomitant]
  13. POTASSIUM CHLORIDE [Concomitant]
  14. ZAROXOLYN [Concomitant]
  15. GLUCOTROL XL [Concomitant]
  16. METFORMIN HCL [Concomitant]
  17. AMOXICILLIN [Concomitant]
  18. MEPHYTON [Concomitant]
  19. PENICILLIN VK [Concomitant]
  20. LOVENOX [Concomitant]
  21. CUTIVATE [Concomitant]
  22. CIPRO [Concomitant]
  23. NEURONTIN [Concomitant]
  24. SANTYL [Concomitant]
  25. AUGMENTIN XR [Concomitant]
  26. ECONAZOLE NITRATE [Concomitant]
  27. VITAMIN K TAB [Concomitant]
  28. PLAVIX [Concomitant]
  29. FERROUS SULFATE TAB [Concomitant]
  30. GABAPENTIN [Concomitant]
  31. GLIPIZIDE [Concomitant]
  32. FINASTERIDE [Concomitant]
  33. NITROFURANTOIN-MACROM [Concomitant]
  34. LANTUS [Concomitant]
  35. NOVOLOG [Concomitant]
  36. PROSCAR [Concomitant]

REACTIONS (27)
  - ANAEMIA [None]
  - BLOOD GLUCOSE INCREASED [None]
  - BLOOD POTASSIUM DECREASED [None]
  - BRAIN NATRIURETIC PEPTIDE INCREASED [None]
  - BUNDLE BRANCH BLOCK RIGHT [None]
  - CARDIAC FAILURE CONGESTIVE [None]
  - CARDIO-RESPIRATORY ARREST [None]
  - DEMENTIA [None]
  - DYSARTHRIA [None]
  - DYSPHAGIA [None]
  - ECONOMIC PROBLEM [None]
  - GANGRENE [None]
  - HAEMATURIA [None]
  - INJURY [None]
  - INTERNATIONAL NORMALISED RATIO INCREASED [None]
  - LETHARGY [None]
  - MENTAL STATUS CHANGES [None]
  - PNEUMONIA [None]
  - PROSTATOMEGALY [None]
  - PROTHROMBIN TIME PROLONGED [None]
  - SEPSIS [None]
  - SOMNOLENCE [None]
  - SPEECH DISORDER [None]
  - SURGERY [None]
  - UNEVALUABLE EVENT [None]
  - URINARY TRACT INFECTION [None]
  - VENTRICULAR FIBRILLATION [None]
